FAERS Safety Report 5583733-3 (Version None)
Quarter: 2008Q1

REPORT INFORMATION
  Report Type: 
  Country: None (occurrence: None)
  Receive Date: 20080102
  Receipt Date: 20070913
  Transmission Date: 20080703
  Serious: Yes (Other)
  Sender: FDA-Public Use
  Company Number: DAB-2007-00004

PATIENT
  Age: 64 Year
  Sex: Female

DRUGS (5)
  1. PACLITAXEL [Suspect]
     Indication: OVARIAN CANCER
     Dosage: INTRAVENOUS
     Route: 042
     Dates: start: 20070816, end: 20070816
  2. DEXAMETHASONE TAB [Concomitant]
  3. ONDANSETRON HCL [Concomitant]
  4. CHLORPHENIRAMINE MALEATE [Concomitant]
  5. RANITIDINE [Concomitant]

REACTIONS (4)
  - BACK PAIN [None]
  - CHEST DISCOMFORT [None]
  - DYSPNOEA [None]
  - INFUSION RELATED REACTION [None]
